FAERS Safety Report 10452171 (Version 1)
Quarter: 2014Q3

REPORT INFORMATION
  Report Type: Spontaneous
  Country: ES (occurrence: None)
  Receive Date: 20140911
  Receipt Date: 20140911
  Transmission Date: 20150326
  Serious: Yes (Hospitalization, Other)
  Sender: FDA-Public Use
  Company Number: ES-ZYDUS-004926

PATIENT
  Age: 35 Year
  Sex: Male

DRUGS (1)
  1. AZATHIOPRINE (AZATHIOPRINE) [Suspect]
     Active Substance: AZATHIOPRINE

REACTIONS (6)
  - Pancytopenia [None]
  - Histiocytosis haematophagic [None]
  - Hepatosplenomegaly [None]
  - Malaise [None]
  - Cytomegalovirus infection [None]
  - Pyrexia [None]
